FAERS Safety Report 7915671-2 (Version None)
Quarter: 2011Q4

REPORT INFORMATION
  Report Type: 
  Country: None (occurrence: None)
  Receive Date: 20111115
  Receipt Date: 20111109
  Transmission Date: 20120403
  Serious: Yes (Other)
  Sender: FDA-Public Use
  Company Number: US-VIIV HEALTHCARE LIMITED-A0942324A

PATIENT
  Sex: Female
  Weight: 2.9 kg

DRUGS (4)
  1. TRUVADA [Suspect]
     Indication: ANTIVIRAL TREATMENT
     Dosage: 500MGD PER DAY
     Route: 064
     Dates: start: 20101101
  2. RETROVIR [Suspect]
     Indication: ANTIRETROVIRAL THERAPY
     Dosage: 2MGKH SINGLE DOSE
     Route: 064
     Dates: start: 20110411, end: 20110411
  3. RETROVIR [Suspect]
     Dosage: 1MGKH SINGLE DOSE
     Route: 064
     Dates: start: 20110411, end: 20110412
  4. ISENTRESS [Suspect]
     Indication: ANTIVIRAL TREATMENT
     Dosage: 800MGD PER DAY
     Route: 064
     Dates: start: 20101101

REACTIONS (1)
  - FOETAL EXPOSURE DURING PREGNANCY [None]
